FAERS Safety Report 9910134 (Version 1)
Quarter: 2014Q1

REPORT INFORMATION
  Report Type: Spontaneous
  Country: US (occurrence: None)
  Receive Date: 20140212
  Receipt Date: 20140212
  Transmission Date: 20141002
  Serious: Yes (Death)
  Sender: FDA-Public Use
  Company Number: USW201401-000019

PATIENT
  Age: 41 Year
  Sex: Female

DRUGS (9)
  1. DANTROLENE [Suspect]
     Indication: HYPERTHERMIA MALIGNANT
  2. BROMOCRIPTINE (BROMOCRIPTINE) [Suspect]
     Indication: HYPERTHERMIA MALIGNANT
  3. PROPOFOL [Concomitant]
  4. ZIPRASIDONE [Concomitant]
  5. LITHIUM [Concomitant]
  6. LAMOTRIGINE [Concomitant]
  7. CLONAZEPAM [Concomitant]
  8. BENZTROPINE [Concomitant]
  9. CHLOMIPRAMINE [Concomitant]

REACTIONS (1)
  - Multi-organ failure [None]
